FAERS Safety Report 13079185 (Version 12)
Quarter: 2018Q2

REPORT INFORMATION
  Report Type: Report from Study
  Country: JP (occurrence: JP)
  Receive Date: 20170103
  Receipt Date: 20180514
  Transmission Date: 20180711
  Serious: Yes (Hospitalization, Other)
  Sender: FDA-Public Use
  Company Number: JP-BRISTOL-MYERS SQUIBB COMPANY-BMS-2016-069725

PATIENT
  Age: 58 Year
  Sex: Male

DRUGS (1)
  1. NIVOLUMAB [Suspect]
     Active Substance: NIVOLUMAB
     Indication: MALIGNANT MELANOMA
     Dosage: 180 MG, Q2WK
     Route: 041
     Dates: start: 20160412, end: 20161215

REACTIONS (6)
  - Hypoglycaemia [Recovered/Resolved]
  - Hypercalcaemia [Recovered/Resolved]
  - Hypothyroidism [Recovering/Resolving]
  - Adrenocorticotropic hormone deficiency [Recovered/Resolved]
  - Hyperthyroidism [Recovered/Resolved]
  - Drug ineffective [Unknown]

NARRATIVE: CASE EVENT DATE: 20160815
